FAERS Safety Report 4532550-1 (Version None)
Quarter: 2004Q4

REPORT INFORMATION
  Report Type: 
  Country: None (occurrence: None)
  Receive Date: 20041206
  Receipt Date: 20041124
  Transmission Date: 20050328
  Serious: Yes (Hospitalization)
  Sender: FDA-Public Use
  Company Number: 2004UW19136

PATIENT
  Sex: Male

DRUGS (1)
  1. CRESTOR [Suspect]

REACTIONS (1)
  - RHABDOMYOLYSIS [None]
